FAERS Safety Report 6719337-6 (Version None)
Quarter: 2010Q2

REPORT INFORMATION
  Report Type: 
  Country: None (occurrence: None)
  Receive Date: 20100511
  Receipt Date: 20100507
  Transmission Date: 20101027
  Serious: Yes (Life-Threatening)
  Sender: FDA-Public Use
  Company Number: PHFR2010GB00473

PATIENT
  Age: 56 Year
  Sex: Male

DRUGS (2)
  1. DICLOFENAC [Suspect]
     Indication: ANAL INFLAMMATION
     Dosage: 1 DF, TID
     Dates: start: 20100331, end: 20100418
  2. FLOXACILLIN SODIUM [Concomitant]
     Dosage: 1 DF, QID
     Dates: start: 20100303, end: 20100303

REACTIONS (2)
  - MULTI-ORGAN FAILURE [None]
  - RENAL FAILURE ACUTE [None]
